FAERS Safety Report 26046630 (Version 1)
Quarter: 2025Q4

REPORT INFORMATION
  Report Type: Report from Study
  Country: US (occurrence: US)
  Receive Date: 20251114
  Receipt Date: 20251114
  Transmission Date: 20260118
  Serious: Yes (Other)
  Sender: MYLAN
  Company Number: US-MYLANLABS-2025M1096764

PATIENT
  Age: 56 Year
  Sex: Female

DRUGS (32)
  1. MYCOPHENOLATE MOFETIL [Suspect]
     Active Substance: MYCOPHENOLATE MOFETIL
     Indication: Behcet^s syndrome
     Dosage: UNK, ALTERNATING THERAPY
  2. MYCOPHENOLATE MOFETIL [Suspect]
     Active Substance: MYCOPHENOLATE MOFETIL
     Dosage: UNK, ALTERNATING THERAPY
     Route: 065
  3. MYCOPHENOLATE MOFETIL [Suspect]
     Active Substance: MYCOPHENOLATE MOFETIL
     Dosage: UNK, ALTERNATING THERAPY
     Route: 065
  4. MYCOPHENOLATE MOFETIL [Suspect]
     Active Substance: MYCOPHENOLATE MOFETIL
     Dosage: UNK, ALTERNATING THERAPY
  5. RITUXIMAB [Suspect]
     Active Substance: RITUXIMAB
     Indication: Behcet^s syndrome
     Dosage: 1000 MILLIGRAM, INITIAL TWO DOSES SEPARATED BY 2 TO 4 WEEKS
  6. RITUXIMAB [Suspect]
     Active Substance: RITUXIMAB
     Dosage: 1000 MILLIGRAM, INITIAL TWO DOSES SEPARATED BY 2 TO 4 WEEKS
     Route: 042
  7. RITUXIMAB [Suspect]
     Active Substance: RITUXIMAB
     Dosage: 1000 MILLIGRAM, INITIAL TWO DOSES SEPARATED BY 2 TO 4 WEEKS
     Route: 042
  8. RITUXIMAB [Suspect]
     Active Substance: RITUXIMAB
     Dosage: 1000 MILLIGRAM, INITIAL TWO DOSES SEPARATED BY 2 TO 4 WEEKS
  9. RITUXIMAB [Suspect]
     Active Substance: RITUXIMAB
     Dosage: 1000 MILLIGRAM, EVERY 4 TO 6 MONTHS
  10. RITUXIMAB [Suspect]
     Active Substance: RITUXIMAB
     Dosage: 1000 MILLIGRAM, EVERY 4 TO 6 MONTHS
     Route: 042
  11. RITUXIMAB [Suspect]
     Active Substance: RITUXIMAB
     Dosage: 1000 MILLIGRAM, EVERY 4 TO 6 MONTHS
  12. RITUXIMAB [Suspect]
     Active Substance: RITUXIMAB
     Dosage: 1000 MILLIGRAM, EVERY 4 TO 6 MONTHS
     Route: 042
  13. RITUXIMAB [Suspect]
     Active Substance: RITUXIMAB
     Dosage: UNK, THERAPY COMPLETED
     Route: 042
  14. RITUXIMAB [Suspect]
     Active Substance: RITUXIMAB
     Dosage: UNK, THERAPY COMPLETED
     Route: 042
  15. RITUXIMAB [Suspect]
     Active Substance: RITUXIMAB
     Dosage: UNK, THERAPY COMPLETED
  16. RITUXIMAB [Suspect]
     Active Substance: RITUXIMAB
     Dosage: UNK, THERAPY COMPLETED
  17. AZATHIOPRINE [Suspect]
     Active Substance: AZATHIOPRINE
     Indication: Behcet^s syndrome
     Dosage: UNK, ALTERNATING THERAPY
  18. AZATHIOPRINE [Suspect]
     Active Substance: AZATHIOPRINE
     Dosage: UNK, ALTERNATING THERAPY
     Route: 065
  19. AZATHIOPRINE [Suspect]
     Active Substance: AZATHIOPRINE
     Dosage: UNK, ALTERNATING THERAPY
     Route: 065
  20. AZATHIOPRINE [Suspect]
     Active Substance: AZATHIOPRINE
     Dosage: UNK, ALTERNATING THERAPY
  21. CYCLOPHOSPHAMIDE [Suspect]
     Active Substance: CYCLOPHOSPHAMIDE
     Indication: Behcet^s syndrome
     Dosage: UNK, ALTERNATING THERAPY
  22. CYCLOPHOSPHAMIDE [Suspect]
     Active Substance: CYCLOPHOSPHAMIDE
     Dosage: UNK, ALTERNATING THERAPY
     Route: 065
  23. CYCLOPHOSPHAMIDE [Suspect]
     Active Substance: CYCLOPHOSPHAMIDE
     Dosage: UNK, ALTERNATING THERAPY
     Route: 065
  24. CYCLOPHOSPHAMIDE [Suspect]
     Active Substance: CYCLOPHOSPHAMIDE
     Dosage: UNK, ALTERNATING THERAPY
  25. CYCLOSPORINE [Suspect]
     Active Substance: CYCLOSPORINE
     Indication: Behcet^s syndrome
     Dosage: UNK, ALTERNATING THERAPY
  26. CYCLOSPORINE [Suspect]
     Active Substance: CYCLOSPORINE
     Dosage: UNK, ALTERNATING THERAPY
     Route: 065
  27. CYCLOSPORINE [Suspect]
     Active Substance: CYCLOSPORINE
     Dosage: UNK, ALTERNATING THERAPY
     Route: 065
  28. CYCLOSPORINE [Suspect]
     Active Substance: CYCLOSPORINE
     Dosage: UNK, ALTERNATING THERAPY
  29. TOCILIZUMAB [Suspect]
     Active Substance: TOCILIZUMAB
     Indication: Behcet^s syndrome
     Dosage: UNK, FOR MANY YEARS
  30. TOCILIZUMAB [Suspect]
     Active Substance: TOCILIZUMAB
     Dosage: UNK, FOR MANY YEARS
     Route: 065
  31. TOCILIZUMAB [Suspect]
     Active Substance: TOCILIZUMAB
     Dosage: UNK, FOR MANY YEARS
     Route: 065
  32. TOCILIZUMAB [Suspect]
     Active Substance: TOCILIZUMAB
     Dosage: UNK, FOR MANY YEARS

REACTIONS (3)
  - B-lymphocyte count decreased [Recovering/Resolving]
  - Treatment failure [Unknown]
  - Product use in unapproved indication [Unknown]
